FAERS Safety Report 17712500 (Version 2)
Quarter: 2020Q2

REPORT INFORMATION
  Report Type: Report from Study
  Country: GB (occurrence: GB)
  Receive Date: 20200427
  Receipt Date: 20200525
  Transmission Date: 20200714
  Serious: Yes (Other)
  Sender: FDA-Public Use
  Company Number: NVSC2020GB112776

PATIENT
  Age: 61 Year
  Sex: Female

DRUGS (4)
  1. COSENTYX [Suspect]
     Active Substance: SECUKINUMAB
     Indication: PSORIASIS
     Dosage: 300 MG, UNKNOWN
     Route: 058
  2. COSENTYX [Suspect]
     Active Substance: SECUKINUMAB
     Dosage: 300 MG, UNKNOWN
     Route: 058
     Dates: start: 20200120
  3. METHOTREXATE. [Concomitant]
     Active Substance: METHOTREXATE
     Indication: ARTHRITIS
     Dosage: UNK
     Route: 065
  4. COSENTYX [Suspect]
     Active Substance: SECUKINUMAB
     Dosage: 300 MG, UNKNOWN
     Route: 058
     Dates: start: 20191220

REACTIONS (4)
  - Oropharyngeal pain [Unknown]
  - Viral infection [Unknown]
  - Cough [Unknown]
  - Pyrexia [Unknown]

NARRATIVE: CASE EVENT DATE: 20191220
